FAERS Safety Report 9217479 (Version 1)
Quarter: 2013Q2

REPORT INFORMATION
  Report Type: Report from Study
  Country: DE (occurrence: DE)
  Receive Date: 20130408
  Receipt Date: 20130408
  Transmission Date: 20140414
  Serious: Yes (Death, Hospitalization, Other)
  Sender: FDA-Public Use
  Company Number: DE-TEVA-395388ISR

PATIENT
  Age: 65 Year
  Sex: Female
  Weight: 46.4 kg

DRUGS (8)
  1. PACLITAXEL [Suspect]
     Indication: OVARIAN CANCER
     Dosage: 283.5 MILLIGRAM DAILY;
     Route: 042
     Dates: start: 20120227, end: 20120418
  2. PACLITAXEL [Suspect]
     Dosage: 276 MILLIGRAM DAILY; LAST DOSE PRIOR TO EVENT 15-MAY-2012
     Route: 042
  3. CARBOPLATIN [Suspect]
     Indication: OVARIAN CANCER
     Dosage: 340 MILLIGRAM DAILY;
     Route: 042
     Dates: start: 20120227, end: 20120515
  4. BEVACIZUMAB [Suspect]
     Indication: OVARIAN CANCER
     Dosage: 810 MILLIGRAM DAILY;
     Route: 042
     Dates: start: 20120321, end: 20120418
  5. BEVACIZUMAB [Suspect]
     Dosage: 765 MILLIGRAM DAILY; LAST DOSE PRIOR TO EVENT 15-MAY-2012
     Route: 042
  6. PANTAZOL [Concomitant]
     Dosage: 2 DOSAGE FORMS DAILY;
     Route: 048
     Dates: start: 20120502
  7. NOVALGIN [Concomitant]
     Indication: PAIN
     Dosage: 2 DOSAGE FORMS DAILY;
     Route: 048
     Dates: start: 20120502
  8. ZOLPIDEM [Concomitant]
     Dosage: 2 DOSAGE FORMS DAILY;
     Route: 048
     Dates: start: 20120502

REACTIONS (8)
  - Sepsis [Fatal]
  - Fistula [Not Recovered/Not Resolved]
  - Anaemia [Unknown]
  - General physical health deterioration [Unknown]
  - Fatigue [Recovered/Resolved]
  - Weight decreased [Unknown]
  - Decreased appetite [Unknown]
  - Infection [Unknown]
